FAERS Safety Report 24410641 (Version 1)
Quarter: 2024Q4

REPORT INFORMATION
  Report Type: Spontaneous
  Country: FR (occurrence: FR)
  Receive Date: 20241008
  Receipt Date: 20241008
  Transmission Date: 20250115
  Serious: Yes (Hospitalization)
  Sender: ROCHE
  Company Number: None

PATIENT
  Age: 78 Year
  Sex: Male
  Weight: 65 kg

DRUGS (1)
  1. GLOFITAMAB [Suspect]
     Active Substance: GLOFITAMAB
     Indication: Diffuse large B-cell lymphoma
     Dosage: 30MG CYCLE 3
     Route: 042
     Dates: start: 20240423

REACTIONS (2)
  - Cytokine release syndrome [Recovered/Resolved]
  - Enterobacter sepsis [Not Recovered/Not Resolved]

NARRATIVE: CASE EVENT DATE: 20240423
